FAERS Safety Report 7291212-0 (Version None)
Quarter: 2011Q1

REPORT INFORMATION
  Report Type: 
  Country: None (occurrence: None)
  Receive Date: 20110214
  Receipt Date: 20110209
  Transmission Date: 20110831
  Serious: Yes (Other)
  Sender: FDA-Public Use
  Company Number: CH-PFIZER INC-2011028719

PATIENT
  Age: 30 Year
  Sex: Female

DRUGS (3)
  1. NEO-MERCAZOLE TAB [Concomitant]
     Indication: HYPERTHYROIDISM
     Route: 048
  2. ZOLOFT [Suspect]
     Indication: DEPRESSION
     Dosage: 50 MG, 1X/DAY
     Route: 048
     Dates: start: 20100101
  3. EDRONAX [Suspect]
     Indication: DEPRESSION
     Dosage: 2 MG, 1X/DAY
     Route: 048
     Dates: start: 20101207, end: 20101209

REACTIONS (6)
  - THIRST [None]
  - DISORIENTATION [None]
  - ASTHENIA [None]
  - PALPITATIONS [None]
  - HYPOAESTHESIA [None]
  - HYPOAESTHESIA ORAL [None]
